FAERS Safety Report 7416391-3 (Version None)
Quarter: 2011Q2

REPORT INFORMATION
  Report Type: 
  Country: None (occurrence: None)
  Receive Date: 20110414
  Receipt Date: 20110407
  Transmission Date: 20111010
  Serious: Yes (Other)
  Sender: FDA-Public Use
  Company Number: US-US-EMD SERONO, INC.-7052798

PATIENT
  Sex: Male
  Weight: 99 kg

DRUGS (4)
  1. VICODIN [Concomitant]
  2. PLAVIX [Concomitant]
  3. REBIF [Suspect]
     Indication: MULTIPLE SCLEROSIS
     Route: 058
     Dates: start: 20000222
  4. ASPIRIN [Concomitant]

REACTIONS (4)
  - CHILLS [None]
  - MYOCARDIAL INFARCTION [None]
  - PAIN [None]
  - TREMOR [None]
